FAERS Safety Report 20617302 (Version 1)
Quarter: 2022Q1

REPORT INFORMATION
  Report Type: Spontaneous
  Country: US (occurrence: None)
  Receive Date: 20220320
  Receipt Date: 20220320
  Transmission Date: 20220423
  Serious: Yes (Disabling)
  Sender: FDA-Public Use
  Company Number: None

PATIENT
  Sex: Female
  Weight: 68.04 kg

DRUGS (1)
  1. PARAGARD T 380A [Suspect]
     Active Substance: COPPER

REACTIONS (6)
  - Haemorrhage [None]
  - Systemic inflammatory response syndrome [None]
  - Musculoskeletal stiffness [None]
  - Grip strength decreased [None]
  - Gait inability [None]
  - Device toxicity [None]

NARRATIVE: CASE EVENT DATE: 20170714
